FAERS Safety Report 5415041-5 (Version None)
Quarter: 2007Q3

REPORT INFORMATION
  Report Type: 
  Country: None (occurrence: None)
  Receive Date: 20070815
  Receipt Date: 20070521
  Transmission Date: 20080115
  Serious: No
  Sender: FDA-Public Use
  Company Number: A0648704A

PATIENT
  Age: 65 Year
  Sex: Male
  Weight: 127.7 kg

DRUGS (1)
  1. COREG CR [Suspect]
     Indication: CORONARY ARTERY DISEASE
     Dosage: 20MG PER DAY
     Route: 048
     Dates: end: 20070411

REACTIONS (3)
  - CHEST DISCOMFORT [None]
  - CLAUSTROPHOBIA [None]
  - DYSPNOEA [None]
